FAERS Safety Report 7242134-2 (Version None)
Quarter: 2011Q1

REPORT INFORMATION
  Report Type: 
  Country: None (occurrence: None)
  Receive Date: 20110124
  Receipt Date: 20110118
  Transmission Date: 20110831
  Serious: Yes (Death, Other)
  Sender: FDA-Public Use
  Company Number: US-ABBOTT-11P-163-0696588-00

PATIENT
  Sex: Male
  Weight: 114 kg

DRUGS (3)
  1. VICODIN [Suspect]
     Indication: BACK PAIN
  2. XANAX [Concomitant]
     Indication: PRODUCT USED FOR UNKNOWN INDICATION
  3. FENTANYL [Suspect]
     Indication: DRUG ABUSE
     Route: 062

REACTIONS (11)
  - MYDRIASIS [None]
  - BRAIN OEDEMA [None]
  - INCORRECT ROUTE OF DRUG ADMINISTRATION [None]
  - CARDIAC ARREST [None]
  - RESPIRATORY ARREST [None]
  - UNRESPONSIVE TO STIMULI [None]
  - CARDIOMEGALY [None]
  - DRUG ABUSE [None]
  - PLEURAL EFFUSION [None]
  - HEADACHE [None]
  - PUPIL FIXED [None]
